FAERS Safety Report 20505354 (Version 2)
Quarter: 2022Q1

REPORT INFORMATION
  Report Type: Report from Study
  Country: KR (occurrence: KR)
  Receive Date: 20220223
  Receipt Date: 20220317
  Transmission Date: 20220424
  Serious: Yes (Other)
  Sender: FDA-Public Use
  Company Number: KR-ABBVIE-22K-090-4288193-00

PATIENT
  Sex: Male
  Weight: 72 kg

DRUGS (7)
  1. RINVOQ [Interacting]
     Active Substance: UPADACITINIB
     Indication: Rheumatoid arthritis
     Route: 048
     Dates: start: 20211229, end: 20220221
  2. RINVOQ [Interacting]
     Active Substance: UPADACITINIB
     Route: 048
     Dates: start: 20220308
  3. METHOTREXATE [Concomitant]
     Active Substance: METHOTREXATE
     Indication: Rheumatoid arthritis
     Dosage: METHOTREXATE (RHEUMATREX. FOLEX)
     Dates: start: 20100713, end: 20220221
  4. PREDNISOLONE [Concomitant]
     Active Substance: PREDNISOLONE
     Indication: Rheumatoid arthritis
     Dates: start: 20100713, end: 20220124
  5. FOLIC ACID [Concomitant]
     Active Substance: FOLIC ACID
     Indication: Vitamin supplementation
     Route: 048
     Dates: start: 20100713
  6. DICAMAX 1000 [Concomitant]
     Indication: Osteoporosis prophylaxis
     Route: 048
     Dates: start: 20130429, end: 20220221
  7. AMOSARTAN [Concomitant]
     Indication: Hypertension
     Dosage: 5/100MG
     Route: 048
     Dates: start: 2015

REACTIONS (1)
  - Hepatotoxicity [Recovering/Resolving]

NARRATIVE: CASE EVENT DATE: 20220222
